FAERS Safety Report 18437798 (Version 1)
Quarter: 2020Q4

REPORT INFORMATION
  Report Type: Spontaneous
  Country: FR (occurrence: FR)
  Receive Date: 20201028
  Receipt Date: 20201028
  Transmission Date: 20210114
  Serious: Yes (Other)
  Sender: FDA-Public Use
  Company Number: FR-ASTRAZENECA-2020SF31390

PATIENT
  Age: 71 Year
  Sex: Male

DRUGS (3)
  1. BENRALIZUMAB. [Concomitant]
     Active Substance: BENRALIZUMAB
     Route: 065
     Dates: start: 201909
  2. DURVALUMAB. [Suspect]
     Active Substance: DURVALUMAB
     Indication: LUNG ADENOCARCINOMA
     Route: 042
     Dates: start: 201906
  3. PREDNISOLONE. [Concomitant]
     Active Substance: PREDNISOLONE
     Route: 065

REACTIONS (1)
  - Chronic obstructive pulmonary disease [Unknown]
